FAERS Safety Report 7401444-6 (Version None)
Quarter: 2011Q2

REPORT INFORMATION
  Report Type: 
  Country: None (occurrence: None)
  Receive Date: 20110407
  Receipt Date: 20110218
  Transmission Date: 20111010
  Serious: No
  Sender: FDA-Public Use
  Company Number: A0914438A

PATIENT
  Age: 59 Year
  Sex: Female

DRUGS (3)
  1. CARBIDOPA [Concomitant]
  2. LEVODOPA [Concomitant]
  3. REQUIP XL [Suspect]
     Indication: PARKINSON'S DISEASE
     Dosage: 16MG PER DAY
     Route: 048
     Dates: start: 20110213

REACTIONS (7)
  - NAUSEA [None]
  - HYPOTENSION [None]
  - MALAISE [None]
  - HEADACHE [None]
  - PRODUCT QUALITY ISSUE [None]
  - SOMNOLENCE [None]
  - DIZZINESS [None]
